FAERS Safety Report 17709583 (Version 1)
Quarter: 2020Q2

REPORT INFORMATION
  Report Type: Other
  Country: DE (occurrence: DE)
  Receive Date: 20200427
  Receipt Date: 20200427
  Transmission Date: 20200714
  Serious: Yes (Other)
  Sender: FDA-Public Use
  Company Number: DE-HEALTHCARE PHARMACEUTICALS LTD.-2083137

PATIENT
  Age: 74 Year
  Sex: Female

DRUGS (1)
  1. DOXORUBICIN HYDROCHLORIDE. [Suspect]
     Active Substance: DOXORUBICIN HYDROCHLORIDE
     Indication: FALLOPIAN TUBE CANCER
     Route: 065

REACTIONS (3)
  - Disease progression [Unknown]
  - Fallopian tube cancer stage III [Unknown]
  - Thrombocytopenia [Unknown]
